FAERS Safety Report 12994067 (Version 2)
Quarter: 2016Q4

REPORT INFORMATION
  Report Type: Spontaneous
  Country: QA (occurrence: QA)
  Receive Date: 20161202
  Receipt Date: 20161211
  Transmission Date: 20170207
  Serious: Yes (Other)
  Sender: FDA-Public Use
  Company Number: QA-SA-2016SA215739

PATIENT
  Age: 30 Year
  Sex: Male

DRUGS (2)
  1. CLOMIFENE CITRATE [Suspect]
     Active Substance: CLOMIPHENE
     Indication: INFERTILITY
     Route: 048
  2. CAPTOPRIL. [Concomitant]
     Active Substance: CAPTOPRIL
     Indication: HYPERTENSION

REACTIONS (7)
  - Vision blurred [Recovered/Resolved]
  - Papilloedema [Recovered/Resolved]
  - Headache [Recovered/Resolved]
  - Vomiting [Recovered/Resolved]
  - Intracranial venous sinus thrombosis [Recovered/Resolved]
  - Diplopia [Recovered/Resolved]
  - Nuclear magnetic resonance imaging brain abnormal [Recovered/Resolved]
